FAERS Safety Report 5727557-2 (Version None)
Quarter: 2008Q2

REPORT INFORMATION
  Report Type: 
  Country: None (occurrence: None)
  Receive Date: 20080505
  Receipt Date: 20080429
  Transmission Date: 20081010
  Serious: Yes (Death)
  Sender: FDA-Public Use
  Company Number: GB-ABBOTT-08P-167-0447577-00

PATIENT
  Age: 87 Year
  Sex: Female

DRUGS (5)
  1. HUMIRA [Suspect]
     Indication: RHEUMATOID ARTHRITIS
     Dates: start: 20031015, end: 20031015
  2. PREDNISOLONE [Concomitant]
     Indication: DRUG USE FOR UNKNOWN INDICATION
  3. ACETAMINOPHEN W/ CODEINE [Concomitant]
     Indication: DRUG USE FOR UNKNOWN INDICATION
  4. LOPERAMIDE HCL [Concomitant]
     Indication: DRUG USE FOR UNKNOWN INDICATION
  5. PROPRANOLOL [Concomitant]
     Indication: DRUG USE FOR UNKNOWN INDICATION

REACTIONS (3)
  - CARDIAC FAILURE [None]
  - ELDERLY [None]
  - PNEUMONIA [None]
